FAERS Safety Report 8879146 (Version 1)
Quarter: 2012Q4

REPORT INFORMATION
  Report Type: Spontaneous
  Country: US (occurrence: None)
  Receive Date: 20121031
  Receipt Date: 20121031
  Transmission Date: 20130627
  Serious: Yes (Death)
  Sender: FDA-Public Use
  Company Number: None

PATIENT
  Age: 71 Year
  Sex: Male
  Weight: 74.84 kg

DRUGS (1)
  1. CARFILZOMIB [Suspect]
     Route: 042
     Dates: start: 20120816, end: 20121002

REACTIONS (1)
  - Feeling abnormal [None]
